FAERS Safety Report 7404957-6 (Version None)
Quarter: 2011Q2

REPORT INFORMATION
  Report Type: 
  Country: None (occurrence: None)
  Receive Date: 20110411
  Receipt Date: 20110329
  Transmission Date: 20111010
  Serious: Yes (Death)
  Sender: FDA-Public Use
  Company Number: JP-ELI_LILLY_AND_COMPANY-JP201103008206

PATIENT
  Age: 83 Year
  Sex: Female

DRUGS (4)
  1. SERENACE [Concomitant]
     Indication: SCHIZOPHRENIA
     Dosage: 1 MG, QD
     Route: 048
     Dates: start: 20100125, end: 20110318
  2. ARICEPT [Concomitant]
     Indication: DEMENTIA
     Dosage: 5 MG, QD
     Route: 048
     Dates: start: 20100125, end: 20110318
  3. FORTEO [Suspect]
     Indication: OSTEOPOROSIS
     Dosage: 20 UG, QD
     Route: 058
     Dates: end: 20110318
  4. BONALON [Concomitant]
     Indication: OSTEOPOROSIS
     Dosage: 5 MG, QD
     Route: 048
     Dates: start: 20100125, end: 20110318

REACTIONS (1)
  - DEATH [None]
